FAERS Safety Report 6500942-7 (Version None)
Quarter: 2009Q4

REPORT INFORMATION
  Report Type: 
  Country: None (occurrence: None)
  Receive Date: 20091216
  Receipt Date: 20090424
  Transmission Date: 20100525
  Serious: No
  Sender: FDA-Public Use
  Company Number: A0781407A

PATIENT
  Age: 60 Year
  Sex: Female

DRUGS (2)
  1. COMMIT [Suspect]
  2. AMOXICILLIN [Concomitant]

REACTIONS (4)
  - INTENTIONAL DRUG MISUSE [None]
  - ORAL DISORDER [None]
  - PRODUCT QUALITY ISSUE [None]
  - SKIN DISCOLOURATION [None]
